FAERS Safety Report 4385667-9 (Version None)
Quarter: 2004Q2

REPORT INFORMATION
  Report Type: 
  Country: None (occurrence: None)
  Receive Date: 20040625
  Receipt Date: 20040625
  Transmission Date: 20050107
  Serious: Yes (Life-Threatening)
  Sender: FDA-Public Use
  Company Number: None

PATIENT
  Age: 16 Year
  Sex: Female
  Weight: 52.1637 kg

DRUGS (1)
  1. DEPAKOTE ER [Suspect]
     Indication: BIPOLAR DISORDER
     Dosage: 1 PO BID
     Route: 048
     Dates: start: 20040601

REACTIONS (4)
  - HYPERTONIA [None]
  - MOVEMENT DISORDER [None]
  - OROPHARYNGEAL SWELLING [None]
  - PARAESTHESIA [None]
